FAERS Safety Report 8003259-7 (Version None)
Quarter: 2011Q4

REPORT INFORMATION
  Report Type: 
  Country: None (occurrence: None)
  Receive Date: 20111222
  Receipt Date: 20111219
  Transmission Date: 20120403
  Serious: Yes (Death)
  Sender: FDA-Public Use
  Company Number: US-PFIZER INC-2011308735

PATIENT
  Age: 55 Year
  Sex: Male

DRUGS (4)
  1. THEOPHYLLINE [Suspect]
  2. VENLAFAXINE HCL [Suspect]
  3. METFORMIN HYDROCHLORIDE [Suspect]
  4. SERTRALINE HYDROCHLORIDE [Suspect]

REACTIONS (1)
  - COMPLETED SUICIDE [None]
